FAERS Safety Report 9606449 (Version 5)
Quarter: 2014Q1

REPORT INFORMATION
  Report Type: Report from Study
  Country: DE (occurrence: DE)
  Receive Date: 20131008
  Receipt Date: 20140320
  Transmission Date: 20141002
  Serious: Yes (Hospitalization)
  Sender: FDA-Public Use
  Company Number: DE-B.I. PHARMACEUTICALS,INC./RIDGEFIELD-2013-RD-00636EU

PATIENT
  Age: 53 Year
  Sex: Female
  Weight: 60 kg

DRUGS (5)
  1. BIBW 2992 [Suspect]
     Indication: BREAST CANCER
     Route: 065
     Dates: start: 20130118
  2. BIBW 2992 [Suspect]
     Indication: METASTASES TO CENTRAL NERVOUS SYSTEM
  3. VINORELBINE [Suspect]
     Indication: BREAST CANCER
     Route: 065
     Dates: start: 20130118
  4. VINORELBINE [Suspect]
     Indication: METASTASES TO CENTRAL NERVOUS SYSTEM
  5. ERYTHROCYTES CONCENTRATE [Concomitant]
     Indication: ANAEMIA
     Route: 042
     Dates: start: 20130713, end: 20130713

REACTIONS (1)
  - Anaemia [Recovered/Resolved]
